FAERS Safety Report 11822631 (Version 1)
Quarter: 2015Q4

REPORT INFORMATION
  Report Type: Spontaneous
  Country: US (occurrence: US)
  Receive Date: 20151210
  Receipt Date: 20151210
  Transmission Date: 20160305
  Serious: No
  Sender: FDA-Public Use
  Company Number: US-JNJFOC-20150602577

PATIENT
  Sex: Female

DRUGS (9)
  1. FLUCONAZOLE. [Concomitant]
     Active Substance: FLUCONAZOLE
     Route: 065
  2. HYDROXYZINE [Concomitant]
     Active Substance: HYDROXYZINE\HYDROXYZINE HYDROCHLORIDE
     Route: 065
  3. LEVAQUIN [Concomitant]
     Active Substance: LEVOFLOXACIN
     Route: 065
  4. VITAMIN D [Concomitant]
     Active Substance: CHOLECALCIFEROL
     Route: 065
  5. IMBRUVICA [Suspect]
     Active Substance: IBRUTINIB
     Indication: B-CELL LYMPHOMA
     Route: 048
     Dates: start: 201503
  6. VICODIN [Concomitant]
     Active Substance: ACETAMINOPHEN\HYDROCODONE BITARTRATE
     Route: 065
  7. CICLOPIROX. [Concomitant]
     Active Substance: CICLOPIROX
     Route: 065
  8. MELATONIN [Concomitant]
     Active Substance: MELATONIN
     Route: 065
  9. TEMAZEPAM. [Concomitant]
     Active Substance: TEMAZEPAM
     Route: 065

REACTIONS (2)
  - Faeces hard [Unknown]
  - Constipation [Unknown]

NARRATIVE: CASE EVENT DATE: 2015
